FAERS Safety Report 10579560 (Version 2)
Quarter: 2015Q1

REPORT INFORMATION
  Report Type: Report from Study
  Country: US (occurrence: US)
  Receive Date: 20141112
  Receipt Date: 20150115
  Transmission Date: 20150720
  Serious: Yes (Hospitalization)
  Sender: FDA-Public Use
  Company Number: US-JNJFOC-20141105526

PATIENT
  Age: 72 Year
  Sex: Female
  Weight: 59 kg

DRUGS (10)
  1. IMBRUVICA [Suspect]
     Active Substance: IBRUTINIB
     Indication: CHRONIC LYMPHOCYTIC LEUKAEMIA
     Route: 065
     Dates: start: 20140606, end: 20141027
  2. IMBRUVICA [Suspect]
     Active Substance: IBRUTINIB
     Indication: CHRONIC LYMPHOCYTIC LEUKAEMIA
     Route: 065
     Dates: start: 20150105
  3. NORCO [Concomitant]
     Active Substance: ACETAMINOPHEN\HYDROCODONE BITARTRATE
     Dosage: 7.5MG - 325MG
  4. POTASSIUM CHLORIDE. [Concomitant]
     Active Substance: POTASSIUM CHLORIDE
  5. ACICLOVIR [Concomitant]
     Active Substance: ACYCLOVIR
  6. PROBIOTICS [Concomitant]
     Active Substance: PROBIOTICS NOS
  7. IVIGLOB EX [Concomitant]
     Active Substance: HUMAN IMMUNOGLOBULIN G
  8. MIRALAX [Concomitant]
     Active Substance: POLYETHYLENE GLYCOL 3350
  9. MULTIVITAMINS [Concomitant]
     Active Substance: VITAMINS
  10. AUGMENTIN [Concomitant]
     Active Substance: AMOXICILLIN\CLAVULANATE POTASSIUM
     Dosage: 875MG -125MG

REACTIONS (26)
  - Nausea [Unknown]
  - Hyperhidrosis [Unknown]
  - Skin lesion [Unknown]
  - Fatigue [Unknown]
  - Mouth ulceration [Unknown]
  - Constipation [Unknown]
  - Spinal compression fracture [Unknown]
  - Arthralgia [Unknown]
  - Decreased appetite [Unknown]
  - Vomiting [Unknown]
  - Sleep disorder [Unknown]
  - Dysgeusia [Unknown]
  - Asthenia [Unknown]
  - Hypercalcaemia of malignancy [Recovered/Resolved]
  - Disease progression [Recovered/Resolved]
  - Acarodermatitis [Recovering/Resolving]
  - Weight decreased [Unknown]
  - Dyspepsia [Unknown]
  - Rash [Unknown]
  - Febrile neutropenia [Unknown]
  - Pneumonitis [Unknown]
  - Pyrexia [Unknown]
  - Dyspnoea [Unknown]
  - Cough [Unknown]
  - Abdominal pain [Unknown]
  - Back pain [Unknown]

NARRATIVE: CASE EVENT DATE: 2014
